FAERS Safety Report 8088050-8 (Version None)
Quarter: 2012Q1

REPORT INFORMATION
  Report Type: 
  Country: None (occurrence: None)
  Receive Date: 20120128
  Receipt Date: 20110527
  Transmission Date: 20120608
  Serious: No
  Sender: FDA-Public Use
  Company Number: US-ABBOTT-11P-163-0728996-00

PATIENT
  Age: 66 Year
  Sex: Female

DRUGS (5)
  1. HUMIRA [Suspect]
     Indication: PSORIATIC ARTHROPATHY
     Dates: start: 20101001
  2. NEXIUM [Concomitant]
     Indication: DYSPEPSIA
  3. METOPROLOL TARTRATE [Concomitant]
     Indication: HYPERTENSION
  4. POTASSIUM CHLORIDE [Concomitant]
     Indication: ELECTROLYTE SUBSTITUTION THERAPY
  5. AMLODIPINE [Concomitant]
     Indication: HYPERTENSION

REACTIONS (5)
  - OROPHARYNGEAL PAIN [None]
  - MIDDLE EAR EFFUSION [None]
  - COUGH [None]
  - NASAL CONGESTION [None]
  - PYREXIA [None]
